FAERS Safety Report 8949793 (Version 1)
Quarter: 2012Q4

REPORT INFORMATION
  Report Type: 
  Country: FR (occurrence: FR)
  Receive Date: 20121206
  Receipt Date: 20121206
  Transmission Date: 20130627
  Serious: Yes (Hospitalization)
  Sender: FDA-Public Use
  Company Number: FR-ROCHE-1162128

PATIENT
  Age: 29 Year
  Sex: Male

DRUGS (3)
  1. RIVOTRIL [Suspect]
     Indication: MANIA
     Route: 048
     Dates: start: 20121030
  2. ZYPREXA [Concomitant]
     Indication: MANIA
     Route: 048
     Dates: start: 20121030
  3. LOXAPAC [Concomitant]
     Indication: MANIA
     Route: 048
     Dates: start: 20121102

REACTIONS (1)
  - Hepatocellular injury [Recovering/Resolving]
